FAERS Safety Report 4828400-6 (Version None)
Quarter: 2005Q4

REPORT INFORMATION
  Report Type: 
  Country: None (occurrence: None)
  Receive Date: 20051115
  Receipt Date: 20051101
  Transmission Date: 20060501
  Serious: Yes (Hospitalization, Disabling)
  Sender: FDA-Public Use
  Company Number: NO-MERCK-0511NOR00004

PATIENT
  Age: 51 Year
  Sex: Male

DRUGS (6)
  1. VIOXX [Suspect]
     Indication: OSTEOARTHRITIS
     Route: 048
     Dates: start: 20010301, end: 20030501
  2. METOPROLOL TARTRATE [Concomitant]
     Indication: HYPERTENSION
     Route: 048
  3. ASPIRIN AND MAGNESIUM OXIDE [Concomitant]
     Indication: MYOCARDIAL INFARCTION
     Route: 048
  4. SIMVASTATIN [Concomitant]
     Indication: HYPERCHOLESTEROLAEMIA
     Route: 048
  5. PREDNISOLONE [Concomitant]
     Indication: OSTEOARTHRITIS
     Route: 065
     Dates: start: 20030101
  6. ACETAMINOPHEN AND CODEINE PHOSPHATE [Concomitant]
     Indication: PAIN
     Route: 048
     Dates: start: 20030410

REACTIONS (5)
  - ABSCESS [None]
  - INTESTINAL FISTULA [None]
  - MYOCARDIAL INFARCTION [None]
  - PERFORATED ULCER [None]
  - POSTOPERATIVE INFECTION [None]
